FAERS Safety Report 7110408-1 (Version None)
Quarter: 2010Q4

REPORT INFORMATION
  Report Type: 
  Country: None (occurrence: None)
  Receive Date: 20101118
  Receipt Date: 20101109
  Transmission Date: 20110411
  Serious: Yes (Hospitalization)
  Sender: FDA-Public Use
  Company Number: GR-ABBOTT-10P-066-0684049-00

PATIENT
  Age: 81 Year
  Sex: Male
  Weight: 51 kg

DRUGS (6)
  1. ZEMPLAR [Suspect]
     Indication: HYPERPARATHYROIDISM SECONDARY
     Route: 042
     Dates: start: 20090109
  2. CLOVELEN [Suspect]
     Indication: ANTIPLATELET THERAPY
     Dates: start: 20100920
  3. VASTAREL [Concomitant]
     Indication: ARTERIOSCLEROSIS
     Route: 048
     Dates: start: 20060101
  4. AMLOPEN [Concomitant]
     Indication: HYPERTENSION
     Route: 048
     Dates: start: 20100630
  5. ZYLORIC [Concomitant]
     Indication: HYPERURICAEMIA
     Route: 048
     Dates: start: 20100804
  6. MADOPAR [Concomitant]
     Indication: PARKINSON'S DISEASE
     Dosage: 1/4 TABLET, 4 TIMES A DAY
     Route: 048
     Dates: start: 20101006

REACTIONS (2)
  - HAEMATOCRIT DECREASED [None]
  - MELAENA [None]
